FAERS Safety Report 19333609 (Version 1)
Quarter: 2021Q2

REPORT INFORMATION
  Report Type: Spontaneous
  Country: US (occurrence: US)
  Receive Date: 20210529
  Receipt Date: 20210529
  Transmission Date: 20210717
  Serious: Yes (Other)
  Sender: FDA-Public Use
  Company Number: US-PURDUE-USA-2020-0218412

PATIENT
  Sex: Male

DRUGS (4)
  1. TRAMADOL CR TABLETS (RHODES 21?745) [Suspect]
     Active Substance: TRAMADOL
     Indication: MULTIPLE INJURIES
     Dosage: UNK
     Route: 048
  2. OXYCODONE HCL CR TABLETS (SIMILAR TO NDA 22?272) [Suspect]
     Active Substance: OXYCODONE HYDROCHLORIDE
     Indication: MULTIPLE INJURIES
     Dosage: UNK
     Route: 048
  3. HYDROCODONE BITARTRATE AND ACETAMINOPHEN [Suspect]
     Active Substance: ACETAMINOPHEN\HYDROCODONE BITARTRATE
     Indication: MULTIPLE INJURIES
     Dosage: UNK
     Route: 048
  4. OXYCONTIN [Suspect]
     Active Substance: OXYCODONE HYDROCHLORIDE
     Indication: MULTIPLE INJURIES
     Dosage: UNK
     Route: 048

REACTIONS (11)
  - Hypersomnia [Unknown]
  - Muscle spasms [Unknown]
  - Hormone level abnormal [Unknown]
  - Insomnia [Unknown]
  - Communication disorder [Unknown]
  - Drug dependence [Unknown]
  - Disturbance in attention [Unknown]
  - Myalgia [Unknown]
  - Mood swings [Unknown]
  - Constipation [Unknown]
  - Mental disorder [Unknown]
